FAERS Safety Report 8009539-3 (Version None)
Quarter: 2011Q4

REPORT INFORMATION
  Report Type: 
  Country: None (occurrence: None)
  Receive Date: 20111227
  Receipt Date: 20111216
  Transmission Date: 20120403
  Serious: Yes (Hospitalization)
  Sender: FDA-Public Use
  Company Number: US-ASTRAZENECA-2010SE28594

PATIENT
  Age: 740 Month
  Sex: Female
  Weight: 90.7 kg

DRUGS (11)
  1. NEXIUM [Suspect]
     Indication: GASTROOESOPHAGEAL REFLUX DISEASE
     Route: 048
  2. PRAVASTATIN [Concomitant]
  3. DILTIAZEM HCL [Concomitant]
  4. NEXIUM [Suspect]
     Indication: DYSPEPSIA
     Route: 048
  5. COUMADIN [Concomitant]
  6. XANAX [Concomitant]
     Indication: NERVOUSNESS
  7. SYMBICORT [Suspect]
     Indication: CHRONIC OBSTRUCTIVE PULMONARY DISEASE
     Dosage: 320 TWO TIMES A DAY
     Route: 055
  8. TRILIPIX [Concomitant]
  9. DARVOCET-N 50 [Concomitant]
  10. ZYRTEC [Concomitant]
  11. DIABETES MED [Concomitant]
     Indication: GLUCOSE TOLERANCE IMPAIRED

REACTIONS (5)
  - ARTHRITIS [None]
  - WEIGHT INCREASED [None]
  - AMNESIA [None]
  - CEREBROVASCULAR ACCIDENT [None]
  - PNEUMONIA [None]
